FAERS Safety Report 6223476-6 (Version None)
Quarter: 2009Q2

REPORT INFORMATION
  Report Type: 
  Country: None (occurrence: None)
  Receive Date: 20090611
  Receipt Date: 20090602
  Transmission Date: 20091009
  Serious: Yes (Other)
  Sender: FDA-Public Use
  Company Number: US-AMGEN-KDL349822

PATIENT
  Sex: Female

DRUGS (5)
  1. NEULASTA [Suspect]
     Indication: CHEMOTHERAPY
     Dates: start: 20090522
  2. DOXORUBICIN HYDROCHLORIDE [Concomitant]
  3. BLEOMYCIN [Concomitant]
  4. VINBLASTINE [Concomitant]
  5. DACARBAZINE [Concomitant]

REACTIONS (4)
  - GLOSSODYNIA [None]
  - LYMPHADENOPATHY [None]
  - NAUSEA [None]
  - SALIVARY GLAND ENLARGEMENT [None]
